FAERS Safety Report 19987738 (Version 3)
Quarter: 2021Q4

REPORT INFORMATION
  Report Type: Report from Study
  Country: CN (occurrence: CN)
  Receive Date: 20211022
  Receipt Date: 20211117
  Transmission Date: 20220303
  Serious: Yes (Hospitalization)
  Sender: FDA-Public Use
  Company Number: CN-ZAILAB-ZAI202100747

PATIENT
  Age: 68 Year
  Sex: Male
  Weight: 57.5 kg

DRUGS (4)
  1. RIPRETINIB [Suspect]
     Active Substance: RIPRETINIB
     Indication: Gastrointestinal stromal tumour
     Dosage: 150 MG, QD
     Route: 048
     Dates: start: 20210309, end: 20210406
  2. RIPRETINIB [Suspect]
     Active Substance: RIPRETINIB
     Dosage: 100 MG, QD
     Route: 048
     Dates: start: 20210602, end: 20210713
  3. RIPRETINIB [Suspect]
     Active Substance: RIPRETINIB
     Dosage: 50 MG, QD
     Route: 048
     Dates: start: 20210803, end: 20211007
  4. FERRIC POLYSACCHARIDE COMPLEX [Concomitant]
     Active Substance: FERRIC POLYSACCHARIDE COMPLEX
     Indication: Anaemia
     Dosage: 0.3 G, QD
     Route: 048
     Dates: start: 20210531

REACTIONS (1)
  - Anaemia [Recovered/Resolved]

NARRATIVE: CASE EVENT DATE: 20211007
